FAERS Safety Report 4964950-X (Version None)
Quarter: 2006Q2

REPORT INFORMATION
  Report Type: 
  Country: None (occurrence: None)
  Receive Date: 20060406
  Receipt Date: 20060330
  Transmission Date: 20061013
  Serious: Yes (Hospitalization)
  Sender: FDA-Public Use
  Company Number: 2006CG00604

PATIENT
  Age: 74 Year
  Sex: Male

DRUGS (11)
  1. MOPRAL [Suspect]
     Route: 042
  2. ATENOLOL [Suspect]
     Route: 048
  3. SANDOGLOBULIN [Suspect]
     Indication: CLOSTRIDIUM COLITIS
     Route: 042
     Dates: start: 20060307, end: 20060307
  4. SANDOGLOBULIN [Suspect]
     Route: 042
     Dates: start: 20060307, end: 20060307
  5. TARGOCID [Suspect]
     Route: 048
  6. ASPEGIC 1000 [Suspect]
     Route: 048
  7. FLAGYL [Suspect]
     Route: 048
  8. CALCIPARINE [Concomitant]
  9. ARANESP [Concomitant]
  10. INSULIN [Concomitant]
  11. SMECTA [Concomitant]

REACTIONS (2)
  - DYSPNOEA [None]
  - ERYTHEMA [None]
